FAERS Safety Report 5965720-6 (Version None)
Quarter: 2008Q4

REPORT INFORMATION
  Report Type: 
  Country: None (occurrence: None)
  Receive Date: 20081121
  Receipt Date: 20081121
  Transmission Date: 20090506
  Serious: No
  Sender: FDA-Public Use
  Company Number: None

PATIENT
  Age: 32 Year
  Sex: Female
  Weight: 54.4316 kg

DRUGS (3)
  1. MIRENA [Suspect]
     Indication: CONTRACEPTION
     Dosage: QTY 1 5 YEARS INTRA-UTERINE
     Route: 015
     Dates: start: 20061016, end: 20081012
  2. MIRENA [Suspect]
     Indication: ENDOMETRIOSIS
     Dosage: QTY 1 5 YEARS INTRA-UTERINE
     Route: 015
     Dates: start: 20061016, end: 20081012
  3. MIRENA [Suspect]
     Indication: PROPHYLAXIS
     Dosage: QTY 1 5 YEARS INTRA-UTERINE
     Route: 015
     Dates: start: 20061016, end: 20081012

REACTIONS (1)
  - ALOPECIA [None]
